FAERS Safety Report 15533409 (Version 1)
Quarter: 2018Q4

REPORT INFORMATION
  Report Type: Spontaneous
  Country: FR (occurrence: FR)
  Receive Date: 20181019
  Receipt Date: 20181019
  Transmission Date: 20190205
  Serious: Yes (Hospitalization)
  Sender: FDA-Public Use
  Company Number: FR-009507513-1810FRA003832

PATIENT
  Age: 63 Year
  Sex: Female
  Weight: 100 kg

DRUGS (3)
  1. CANCIDAS [Suspect]
     Active Substance: CASPOFUNGIN ACETATE
     Indication: CANDIDA INFECTION
     Dosage: NOT SPECIFIED
     Route: 042
     Dates: start: 20180708, end: 20180816
  2. PIPERACILLIN AND TAZOBACTAM [Suspect]
     Active Substance: PIPERACILLIN SODIUM\TAZOBACTAM SODIUM
     Indication: BLOOD CULTURE POSITIVE
     Dosage: NOT SPECIFIED
     Route: 042
     Dates: start: 20180720, end: 20180816
  3. TARGOCID [Suspect]
     Active Substance: TEICOPLANIN
     Indication: BLOOD CULTURE POSITIVE
     Dosage: NOT SPECIFIED
     Route: 042
     Dates: start: 20180806, end: 20180815

REACTIONS (1)
  - Drug reaction with eosinophilia and systemic symptoms [Recovering/Resolving]

NARRATIVE: CASE EVENT DATE: 20180814
